FAERS Safety Report 6403510-0 (Version None)
Quarter: 2009Q4

REPORT INFORMATION
  Report Type: 
  Country: None (occurrence: None)
  Receive Date: 20091016
  Receipt Date: 20091009
  Transmission Date: 20100525
  Serious: Yes (Death)
  Sender: FDA-Public Use
  Company Number: JP-AVENTIS-200912549JP

PATIENT
  Age: 68 Year
  Sex: Male

DRUGS (3)
  1. LANTUS [Suspect]
     Dosage: DOSE: 14 UNITS
     Route: 058
     Dates: end: 20090830
  2. METFORMIN HCL [Concomitant]
     Route: 048
     Dates: end: 20090801
  3. UNKNOWN DRUG [Concomitant]
     Route: 048

REACTIONS (8)
  - ARTERIOSCLEROSIS OBLITERANS [None]
  - CARDIO-RESPIRATORY ARREST [None]
  - CEREBRAL INFARCTION [None]
  - DISEASE COMPLICATION [None]
  - EATING DISORDER [None]
  - GLAUCOMA [None]
  - HYPOGLYCAEMIA [None]
  - MYOCARDIAL INFARCTION [None]
